FAERS Safety Report 8374817-5 (Version None)
Quarter: 2012Q2

REPORT INFORMATION
  Report Type: 
  Country: None (occurrence: None)
  Receive Date: 20120521
  Receipt Date: 20120517
  Transmission Date: 20120825
  Serious: Yes (Other)
  Sender: FDA-Public Use
  Company Number: JP-PFIZER INC-2012105316

PATIENT
  Age: 88 Year
  Sex: Male

DRUGS (1)
  1. LYRICA [Suspect]
     Dosage: 75 MG, 1X/DAY BEFORE SLEEP

REACTIONS (2)
  - GLUCOSE URINE PRESENT [None]
  - OEDEMA PERIPHERAL [None]
